FAERS Safety Report 12473556 (Version 4)
Quarter: 2016Q4

REPORT INFORMATION
  Report Type: Report from Study
  Country: IT (occurrence: IT)
  Receive Date: 20160616
  Receipt Date: 20161102
  Transmission Date: 20170207
  Serious: Yes (Other)
  Sender: FDA-Public Use
  Company Number: PHHO2016IT008469

PATIENT
  Age: 64 Year
  Sex: Male
  Weight: 78 kg

DRUGS (2)
  1. SARTAN [Concomitant]
     Active Substance: LOSARTAN POTASSIUM
     Indication: HYPERTENSION
     Route: 065
  2. AIN457 [Suspect]
     Active Substance: SECUKINUMAB
     Indication: PSORIASIS
     Dosage: 300 MG, UNK
     Route: 058
     Dates: start: 20160210

REACTIONS (1)
  - Hypertriglyceridaemia [Recovered/Resolved]

NARRATIVE: CASE EVENT DATE: 20160531
